FAERS Safety Report 15370770 (Version 1)
Quarter: 2018Q3

REPORT INFORMATION
  Report Type: Spontaneous
  Country: NL (occurrence: NL)
  Receive Date: 20180911
  Receipt Date: 20180911
  Transmission Date: 20181010
  Serious: Yes (Other)
  Sender: FDA-Public Use
  Company Number: NL-TAKEDA-2018TUS026718

PATIENT
  Sex: Female

DRUGS (1)
  1. ALUNBRIG [Suspect]
     Active Substance: BRIGATINIB
     Indication: LUNG CANCER METASTATIC
     Dosage: UNK
     Route: 048

REACTIONS (3)
  - Asthenia [Unknown]
  - Neoplasm progression [Unknown]
  - Fatigue [Unknown]
